FAERS Safety Report 11679564 (Version 2)
Quarter: 2015Q4

REPORT INFORMATION
  Report Type: Spontaneous
  Country: US (occurrence: US)
  Receive Date: 20151027
  Receipt Date: 20151104
  Transmission Date: 20160304
  Serious: No
  Sender: FDA-Public Use
  Company Number: US-ELI_LILLY_AND_COMPANY-US201010005918

PATIENT
  Age: 65 Year
  Sex: Female

DRUGS (6)
  1. CALCIUM [Concomitant]
     Active Substance: CALCIUM
     Indication: BONE DISORDER
  2. FORTEO [Suspect]
     Active Substance: TERIPARATIDE
     Dosage: 20 UG, DAILY (1/D)
     Dates: start: 20101220
  3. FORTEO [Suspect]
     Active Substance: TERIPARATIDE
     Indication: OSTEOPOROSIS
     Dosage: 20 UG, DAILY (1/D)
     Dates: start: 201009, end: 201012
  4. TESTOSTERONE. [Concomitant]
     Active Substance: TESTOSTERONE
  5. PROGESTIN [Concomitant]
     Active Substance: PROGESTERONE
  6. VIVELLE-DOT [Concomitant]
     Active Substance: ESTRADIOL

REACTIONS (16)
  - Musculoskeletal discomfort [Recovering/Resolving]
  - Movement disorder [Recovering/Resolving]
  - Stress [Recovering/Resolving]
  - Paraesthesia [Recovering/Resolving]
  - Medication error [Unknown]
  - Posture abnormal [Recovering/Resolving]
  - Back disorder [Recovering/Resolving]
  - Injection site bruising [Unknown]
  - Muscle spasms [Recovering/Resolving]
  - Back pain [Recovering/Resolving]
  - Pain in extremity [Recovering/Resolving]
  - Malaise [Recovering/Resolving]
  - Asthenia [Recovering/Resolving]
  - Blood calcium increased [Unknown]
  - Fatigue [Recovering/Resolving]
  - Myalgia [Recovering/Resolving]

NARRATIVE: CASE EVENT DATE: 201012
